FAERS Safety Report 6391264-6 (Version None)
Quarter: 2009Q4

REPORT INFORMATION
  Report Type: 
  Country: None (occurrence: None)
  Receive Date: 20091005
  Receipt Date: 20090919
  Transmission Date: 20100525
  Serious: Yes (Death)
  Sender: FDA-Public Use
  Company Number: AE-2009-214

PATIENT
  Age: 36 Year
  Sex: Male

DRUGS (5)
  1. METOPROLOL [Suspect]
     Dosage: ORAL
     Route: 048
  2. IBUPROFEN [Suspect]
     Dosage: ORAL
     Route: 048
  3. LAMOTRIGINE [Suspect]
     Dosage: ORAL
     Route: 048
  4. VALPROIC ACID [Concomitant]
  5. DIPHENHYDRAMINE HCL [Concomitant]

REACTIONS (1)
  - COMPLETED SUICIDE [None]
